FAERS Safety Report 5833452-0 (Version None)
Quarter: 2008Q3

REPORT INFORMATION
  Report Type: 
  Country: None (occurrence: None)
  Receive Date: 20080805
  Receipt Date: 20080728
  Transmission Date: 20090109
  Serious: Yes (Other)
  Sender: FDA-Public Use
  Company Number: US-ASTRAZENECA-2007UW15944

PATIENT
  Age: 8 Year
  Sex: Male
  Weight: 93.9 kg

DRUGS (4)
  1. SEROQUEL [Suspect]
     Indication: BIPOLAR DISORDER
     Dosage: 100 MG TO 200 MG
     Route: 048
     Dates: start: 19990101, end: 20040101
  2. SEROQUEL [Suspect]
     Indication: DEPRESSION
     Dosage: 100 MG TO 200 MG
     Route: 048
     Dates: start: 19990101, end: 20040101
  3. ABILIFY [Concomitant]
     Dates: start: 20060101, end: 20070101
  4. RISPERDAL [Concomitant]
     Dates: start: 20030102

REACTIONS (5)
  - BRAIN INJURY [None]
  - DIABETES MELLITUS [None]
  - GASTROINTESTINAL DISORDER [None]
  - HYPERSENSITIVITY [None]
  - LOCALISED INFECTION [None]
